FAERS Safety Report 6124084-8 (Version None)
Quarter: 2009Q1

REPORT INFORMATION
  Report Type: 
  Country: None (occurrence: None)
  Receive Date: 20090318
  Receipt Date: 20090318
  Transmission Date: 20090719
  Serious: Yes (Death)
  Sender: FDA-Public Use
  Company Number: None

PATIENT
  Age: 15 Year
  Sex: Male
  Weight: 68.0396 kg

DRUGS (2)
  1. CARBATROL [Suspect]
     Indication: CONVULSION
     Dosage: 1 EVERY MORNING PO
     Route: 048
     Dates: start: 20080404, end: 20090213
  2. CARBATROL [Suspect]
     Indication: CONVULSION
     Dosage: 1 EACH NIGHT PO
     Route: 048
     Dates: start: 20080404, end: 20090213

REACTIONS (1)
  - ASPHYXIA [None]
